FAERS Safety Report 8818607 (Version 2)
Quarter: 2012Q4

REPORT INFORMATION
  Report Type: 
  Country: US (occurrence: US)
  Receive Date: 20121001
  Receipt Date: 20121109
  Transmission Date: 20130627
  Serious: Yes (Death, Other)
  Sender: FDA-Public Use
  Company Number: US-PFIZER INC-2012240618

PATIENT
  Age: 45 Year
  Sex: Male

DRUGS (3)
  1. RAPAMUNE [Suspect]
     Indication: GASTROINTESTINAL STROMAL TUMOR
     Dosage: 6 mg daily (3 tablets of 2 mg once a day)
     Route: 048
     Dates: start: 201112
  2. RAPAMUNE [Suspect]
     Dosage: 2 mg, daily
     Route: 048
  3. GLEEVEC [Concomitant]
     Dosage: UNK

REACTIONS (3)
  - Neoplasm progression [Fatal]
  - Gastrointestinal stromal tumour [Fatal]
  - Off label use [Unknown]
